FAERS Safety Report 24453773 (Version 2)
Quarter: 2024Q4

REPORT INFORMATION
  Report Type: Spontaneous
  Country: CA (occurrence: CA)
  Receive Date: 20241017
  Receipt Date: 20241018
  Transmission Date: 20250114
  Serious: No
  Sender: ROCHE
  Company Number: CA-ROCHE-3397798

PATIENT
  Sex: Female

DRUGS (2)
  1. RITUXAN [Suspect]
     Active Substance: RITUXIMAB
     Indication: Product used for unknown indication
     Dosage: FREQUENCY TEXT:DAY 1 + DAY 15
     Route: 041
  2. RITUXAN [Suspect]
     Active Substance: RITUXIMAB
     Route: 042

REACTIONS (2)
  - Lethargy [Unknown]
  - Rheumatoid arthritis [Unknown]
